FAERS Safety Report 11087944 (Version 1)
Quarter: 2015Q2

REPORT INFORMATION
  Report Type: Spontaneous
  Country: IT (occurrence: None)
  Receive Date: 20150430
  Receipt Date: 20150430
  Transmission Date: 20150821
  Serious: Yes (Other)
  Sender: FDA-Public Use
  Company Number: 2015/031

PATIENT
  Age: 65 Year
  Sex: Male
  Weight: 64 kg

DRUGS (4)
  1. AMLODIPINE 9NO PREF. NAME) [Suspect]
     Active Substance: AMLODIPINE BESYLATE
  2. TELAPREVIR (NO PREF. NAME) [Suspect]
     Active Substance: TELAPREVIR
     Indication: HEPATITIS C
  3. PEGINTERFERON A-2A [Concomitant]
  4. RIBAVIRIN. [Concomitant]
     Active Substance: RIBAVIRIN

REACTIONS (2)
  - Blood creatinine increased [None]
  - Blood glucose increased [None]
